FAERS Safety Report 13915181 (Version 1)
Quarter: 2017Q3

REPORT INFORMATION
  Report Type: Spontaneous
  Country: US (occurrence: US)
  Receive Date: 20170828
  Receipt Date: 20170828
  Transmission Date: 20171127
  Serious: Yes (Hospitalization)
  Sender: FDA-Public Use
  Company Number: None

PATIENT
  Age: 25 Year
  Sex: Male
  Weight: 76.5 kg

DRUGS (3)
  1. LITHIUM. [Concomitant]
     Active Substance: LITHIUM
  2. ZYPREXA [Concomitant]
     Active Substance: OLANZAPINE
  3. LAMOTRAGINE [Suspect]
     Active Substance: LAMOTRIGINE
     Indication: HYPOMANIA
     Dosage: ?          QUANTITY:2 TABLET(S); ORAL?
     Route: 048
     Dates: start: 20170713, end: 20170809

REACTIONS (1)
  - Acute psychosis [None]

NARRATIVE: CASE EVENT DATE: 20170803
